FAERS Safety Report 20847730 (Version 1)
Quarter: 2022Q2

REPORT INFORMATION
  Report Type: Spontaneous
  Country: US (occurrence: US)
  Receive Date: 20220519
  Receipt Date: 20220519
  Transmission Date: 20220721
  Serious: No
  Sender: FDA-Public Use
  Company Number: US-BRISTOL-MYERS SQUIBB COMPANY-2022-016783

PATIENT
  Age: 57 Year
  Sex: Female

DRUGS (1)
  1. REVLIMID [Suspect]
     Active Substance: LENALIDOMIDE
     Indication: Rosai-Dorfman syndrome
     Dosage: DOSE: 15 MILLIGRAM, FREQ: DAILY
     Route: 048
     Dates: start: 20220401

REACTIONS (1)
  - Intentional product use issue [Unknown]
